FAERS Safety Report 19188018 (Version 2)
Quarter: 2021Q2

REPORT INFORMATION
  Report Type: Spontaneous
  Country: JP (occurrence: JP)
  Receive Date: 20210427
  Receipt Date: 20210623
  Transmission Date: 20210717
  Serious: Yes (Other)
  Sender: FDA-Public Use
  Company Number: JP-GLAXOSMITHKLINE-JP2021JPN088220

PATIENT
  Age: 58 Year
  Sex: Female

DRUGS (8)
  1. PREDNISOLONE. [Concomitant]
     Active Substance: PREDNISOLONE
     Indication: RETINAL DISORDER
     Dosage: TAPERED THERAPY FROM 60 MG/DAY
  2. VALTREX [Suspect]
     Active Substance: VALACYCLOVIR HYDROCHLORIDE
     Indication: RETINAL DISORDER
     Dosage: 3000 MG
     Route: 048
  3. BAYASPIRIN [Concomitant]
     Active Substance: ASPIRIN
     Indication: RETINAL DISORDER
     Dosage: 100 MG
  4. BETAMETHASONE SODIUM PHOSPHATE [Concomitant]
     Active Substance: BETAMETHASONE SODIUM PHOSPHATE
     Indication: RETINAL DISORDER
     Dosage: UNK, QID, RIGHT EYE
     Route: 047
  5. PREDNISOLONE. [Concomitant]
     Active Substance: PREDNISOLONE
     Dosage: TAPERED THERAPY FROM 60 MG/DAY
  6. BETAMETHASONE SODIUM PHOSPHATE [Concomitant]
     Active Substance: BETAMETHASONE SODIUM PHOSPHATE
     Dosage: UNK, QID
     Route: 047
  7. VALTREX [Suspect]
     Active Substance: VALACYCLOVIR HYDROCHLORIDE
     Dosage: 3000 G
     Route: 048
  8. ZOVIRAX [Suspect]
     Active Substance: ACYCLOVIR
     Indication: RETINAL DISORDER
     Dosage: 1275 MG
     Route: 041

REACTIONS (10)
  - Tractional retinal detachment [Unknown]
  - Corneal deposits [Unknown]
  - Product use in unapproved indication [Unknown]
  - Anterior chamber inflammation [Recovering/Resolving]
  - Ciliary hyperaemia [Unknown]
  - Prescribed overdose [Unknown]
  - Retinal disorder [Unknown]
  - Visual acuity reduced [Recovering/Resolving]
  - Retinal detachment [Unknown]
  - Vitreous opacities [Unknown]
